FAERS Safety Report 14553837 (Version 7)
Quarter: 2018Q3

REPORT INFORMATION
  Report Type: Spontaneous
  Country: US (occurrence: US)
  Receive Date: 20180220
  Receipt Date: 20180806
  Transmission Date: 20181010
  Serious: Yes (Congenital Anomaly, Other)
  Sender: FDA-Public Use
  Company Number: PHEH2018US006665

PATIENT
  Sex: Male

DRUGS (2)
  1. ZOFRAN ODT [Suspect]
     Active Substance: ONDANSETRON HYDROCHLORIDE
     Indication: FOETAL EXPOSURE DURING PREGNANCY
     Route: 064
  2. ZOFRAN [Suspect]
     Active Substance: ONDANSETRON HYDROCHLORIDE
     Indication: FOETAL EXPOSURE DURING PREGNANCY
     Route: 064

REACTIONS (29)
  - Congenital pulmonary valve disorder [Unknown]
  - Bundle branch block right [Unknown]
  - Right ventricular enlargement [Unknown]
  - Right aortic arch [Unknown]
  - Aortic valve incompetence [Unknown]
  - Cough [Unknown]
  - Right ventricular dilatation [Unknown]
  - Right ventricular hypertrophy [Unknown]
  - Dizziness [Unknown]
  - Cardiomegaly [Unknown]
  - Jaundice neonatal [Unknown]
  - Fallot^s tetralogy [Unknown]
  - Ventricular septal defect [Unknown]
  - Heart disease congenital [Unknown]
  - Injury [Unknown]
  - Pulmonary artery atresia [Unknown]
  - Apnoea [Unknown]
  - Pneumothorax [Unknown]
  - Tachycardia [Unknown]
  - Chest pain [Unknown]
  - Atrial septal defect [Unknown]
  - Congenital aortic anomaly [Unknown]
  - Ventricular hypertrophy [Unknown]
  - Pulmonary artery stenosis [Unknown]
  - Tricuspid valve incompetence [Unknown]
  - Pulmonary valve stenosis [Unknown]
  - Pulmonary valve incompetence [Unknown]
  - Foetal exposure during pregnancy [Unknown]
  - Atelectasis [Unknown]
